FAERS Safety Report 5551567-1 (Version None)
Quarter: 2007Q4

REPORT INFORMATION
  Report Type: 
  Country: None (occurrence: None)
  Receive Date: 20071212
  Receipt Date: 20071202
  Transmission Date: 20080405
  Serious: Yes (Hospitalization, Other)
  Sender: FDA-Public Use
  Company Number: DE-PFIZER INC-2007101831

PATIENT
  Age: 63 Year
  Sex: Female

DRUGS (2)
  1. SORTIS [Suspect]
     Indication: HYPERCHOLESTEROLAEMIA
     Dosage: DAILY DOSE:10MG
     Route: 048
     Dates: start: 20070801, end: 20071101
  2. KLACID [Suspect]
     Indication: SINOBRONCHITIS
     Route: 048
     Dates: start: 20071030, end: 20071103

REACTIONS (7)
  - C-REACTIVE PROTEIN INCREASED [None]
  - CHEST PAIN [None]
  - MUSCULOSKELETAL CHEST PAIN [None]
  - PLEURISY [None]
  - RED BLOOD CELL SEDIMENTATION RATE INCREASED [None]
  - SINOBRONCHITIS [None]
  - TEMPERATURE INTOLERANCE [None]
